FAERS Safety Report 7126137-4 (Version None)
Quarter: 2010Q4

REPORT INFORMATION
  Report Type: 
  Country: None (occurrence: None)
  Receive Date: 20101129
  Receipt Date: 20101116
  Transmission Date: 20110411
  Serious: Yes (Other)
  Sender: FDA-Public Use
  Company Number: GB-JNJFOC-20101106233

PATIENT
  Age: 13 Year
  Sex: Female

DRUGS (1)
  1. ORTHO EVRA [Suspect]
     Indication: MENORRHAGIA
     Route: 062

REACTIONS (6)
  - DRUG ADMINISTRATION ERROR [None]
  - EYE SWELLING [None]
  - LIP SWELLING [None]
  - LOCAL SWELLING [None]
  - OFF LABEL USE [None]
  - SWELLING FACE [None]
